FAERS Safety Report 13277489 (Version 1)
Quarter: 2017Q1

REPORT INFORMATION
  Report Type: Spontaneous
  Country: ES (occurrence: ES)
  Receive Date: 20170228
  Receipt Date: 20170228
  Transmission Date: 20170428
  Serious: Yes (Other)
  Sender: FDA-Public Use
  Company Number: ES-REGENERON PHARMACEUTICALS, INC.-2017-12642

PATIENT

DRUGS (3)
  1. VERTEPORFIN [Suspect]
     Active Substance: VERTEPORFIN
     Indication: PHOTODYNAMIC THERAPY
     Dosage: UNK
  2. AFLIBERCEPT IAI [Suspect]
     Active Substance: AFLIBERCEPT
     Indication: NEOVASCULAR AGE-RELATED MACULAR DEGENERATION
     Dosage: 6 INJECTIONS
  3. AFLIBERCEPT IAI [Suspect]
     Active Substance: AFLIBERCEPT
     Dosage: 1 INJECTION 48 HRS AFTER PDT (COMBINED THERAPY)

REACTIONS (8)
  - Subretinal fluid [Unknown]
  - Visual acuity reduced [Unknown]
  - Retinal detachment [Unknown]
  - Retinal disorder [Unknown]
  - Choroidal neovascularisation [Unknown]
  - Neovascular age-related macular degeneration [Unknown]
  - Visual acuity reduced [Recovered/Resolved]
  - Drug ineffective [Unknown]
